FAERS Safety Report 9915617 (Version 1)
Quarter: 2014Q1

REPORT INFORMATION
  Report Type: Spontaneous
  Country: US (occurrence: None)
  Receive Date: 20140219
  Receipt Date: 20140219
  Transmission Date: 20141002
  Serious: Yes (Disabling, Other)
  Sender: FDA-Public Use
  Company Number: None

PATIENT
  Age: 48 Year
  Sex: Female
  Weight: 72.58 kg

DRUGS (1)
  1. MONISTAT 1 DAY [Suspect]
     Indication: FUNGAL INFECTION
     Route: 067
     Dates: start: 20140216, end: 20140216

REACTIONS (9)
  - Feeling cold [None]
  - Vomiting [None]
  - Muscle spasms [None]
  - Muscle spasms [None]
  - Fatigue [None]
  - Dehydration [None]
  - Hypophagia [None]
  - Puncture site pain [None]
  - Vessel puncture site bruise [None]
